FAERS Safety Report 13433691 (Version 3)
Quarter: 2017Q3

REPORT INFORMATION
  Report Type: Spontaneous
  Country: JP (occurrence: JP)
  Receive Date: 20170412
  Receipt Date: 20170724
  Transmission Date: 20171127
  Serious: Yes (Hospitalization)
  Sender: FDA-Public Use
  Company Number: JP-BAYER-2017-063229

PATIENT
  Age: 84 Year
  Sex: Male
  Weight: 43 kg

DRUGS (3)
  1. STIVARGA [Suspect]
     Active Substance: REGORAFENIB
     Indication: COLORECTAL CANCER
     Dosage: 120 MG, QD
     Route: 048
     Dates: start: 20170313, end: 20170323
  2. EPINASTINE HYDROCHLORIDE. [Concomitant]
     Active Substance: EPINASTINE HYDROCHLORIDE
     Route: 048
  3. LANSOPRAZOLE. [Concomitant]
     Active Substance: LANSOPRAZOLE
     Route: 048

REACTIONS (10)
  - Abdominal pain [None]
  - Dysstasia [None]
  - Malignant ascites [Not Recovered/Not Resolved]
  - Vomiting [Recovering/Resolving]
  - Pneumonia [Recovering/Resolving]
  - Pneumatosis [Recovered/Resolved]
  - Ileus [Recovering/Resolving]
  - Motor dysfunction [None]
  - Abdominal abscess [Recovered/Resolved]
  - Abdominal distension [None]

NARRATIVE: CASE EVENT DATE: 20170320
